FAERS Safety Report 4315582-8 (Version None)
Quarter: 2004Q1

REPORT INFORMATION
  Report Type: 
  Country: None (occurrence: None)
  Receive Date: 20040309
  Receipt Date: 20040223
  Transmission Date: 20041129
  Serious: Yes (Hospitalization, Other)
  Sender: FDA-Public Use
  Company Number: USA040260058

PATIENT
  Age: 67 Year
  Sex: Female

DRUGS (15)
  1. EVISTA [Suspect]
     Indication: OSTEOARTHRITIS
     Dates: start: 20030101
  2. EVISTA [Suspect]
     Indication: OSTEOPOROSIS
     Dates: start: 20030101
  3. NIASPAN [Concomitant]
  4. LIPITOR [Concomitant]
  5. PLAVIX [Concomitant]
  6. METOPROLOL [Concomitant]
  7. ALTACE [Concomitant]
  8. PROPOXYPHENE [Concomitant]
  9. CLONAZEPAM [Concomitant]
  10. NORTRIPTYLINE HCL [Concomitant]
  11. ZOLOFT [Concomitant]
  12. NEXIUM [Concomitant]
  13. CELEBREX [Concomitant]
  14. NICOTROL (NICOTINE) [Concomitant]
  15. [REMARIN (ESTROGENS CONJUGATED) [Concomitant]

REACTIONS (7)
  - ARTERIAL OCCLUSIVE DISEASE [None]
  - ARTERIAL STENT INSERTION [None]
  - BLOOD PRESSURE INCREASED [None]
  - FALL [None]
  - HOT FLUSH [None]
  - MYOCARDIAL INFARCTION [None]
  - SPINAL FRACTURE [None]
